FAERS Safety Report 22637285 (Version 1)
Quarter: 2023Q2

REPORT INFORMATION
  Report Type: Spontaneous
  Country: IN (occurrence: IN)
  Receive Date: 20230626
  Receipt Date: 20230626
  Transmission Date: 20230721
  Serious: Yes (Other)
  Sender: FDA-Public Use
  Company Number: IN-MLMSERVICE-20230615-4343712-1

PATIENT
  Sex: Female

DRUGS (2)
  1. CYCLOPHOSPHAMIDE [Suspect]
     Active Substance: CYCLOPHOSPHAMIDE
     Indication: Invasive lobular breast carcinoma
     Dosage: UNK
  2. DOCETAXEL [Suspect]
     Active Substance: DOCETAXEL
     Indication: Invasive lobular breast carcinoma
     Dosage: UNK

REACTIONS (7)
  - Nail discolouration [Unknown]
  - Onychomadesis [Unknown]
  - Madarosis [Unknown]
  - Paraesthesia [Unknown]
  - Alopecia [Unknown]
  - Paraesthesia [Unknown]
  - Anxiety [Unknown]
